FAERS Safety Report 7974030-7 (Version None)
Quarter: 2011Q4

REPORT INFORMATION
  Report Type: 
  Country: None (occurrence: None)
  Receive Date: 20111213
  Receipt Date: 20111207
  Transmission Date: 20120403
  Serious: Yes (Death, Hospitalization)
  Sender: FDA-Public Use
  Company Number: KR-GLAXOSMITHKLINE-B0754710B

PATIENT

DRUGS (8)
  1. ASPIRIN [Concomitant]
     Indication: THROMBOSIS PROPHYLAXIS
     Route: 048
  2. MELPHALAN HYDROCHLORIDE [Suspect]
     Indication: MULTIPLE MYELOMA
     Dosage: 4MG PER DAY
     Route: 065
     Dates: start: 20110914, end: 20111026
  3. GLIATILIN [Concomitant]
     Indication: DIABETES MELLITUS
     Dosage: 800MG TWICE PER DAY
     Route: 048
     Dates: start: 20051001, end: 20111118
  4. DIPYRONE TAB [Concomitant]
     Indication: PROPHYLAXIS
     Route: 048
     Dates: start: 20101001, end: 20111118
  5. THALIDOMIDE [Suspect]
     Indication: MULTIPLE MYELOMA
     Dosage: 200MG PER DAY
     Route: 048
     Dates: start: 20110914
  6. AMARYL [Concomitant]
     Indication: HYPERTENSION
     Route: 048
     Dates: start: 20050901, end: 20111118
  7. PREDNISONE TAB [Suspect]
     Indication: MULTIPLE MYELOMA
     Dosage: 60MG PER DAY
     Dates: start: 20110914, end: 20111026
  8. DIOVAN [Concomitant]
     Indication: DIABETES MELLITUS
     Dosage: 80MG PER DAY
     Route: 048

REACTIONS (1)
  - ASTHENIA [None]
